FAERS Safety Report 7360746-2 (Version None)
Quarter: 2011Q1

REPORT INFORMATION
  Report Type: 
  Country: None (occurrence: None)
  Receive Date: 20110318
  Receipt Date: 20100916
  Transmission Date: 20110831
  Serious: Yes (Other)
  Sender: FDA-Public Use
  Company Number: US-BAYER-201014007NA

PATIENT
  Sex: Female
  Weight: 70.295 kg

DRUGS (2)
  1. YASMIN [Suspect]
     Indication: PRODUCT USED FOR UNKNOWN INDICATION
     Dosage: AS USED DOSE: UNK
     Route: 048
     Dates: start: 20080701
  2. YAZ [Suspect]
     Indication: ACNE
     Dosage: UNK
     Dates: start: 20080701, end: 20090201

REACTIONS (3)
  - HYPERKALAEMIA [None]
  - CHOLECYSTECTOMY [None]
  - THROMBOTIC THROMBOCYTOPENIC PURPURA [None]
